FAERS Safety Report 25012258 (Version 2)
Quarter: 2025Q1

REPORT INFORMATION
  Report Type: Report from Study
  Country: US (occurrence: US)
  Receive Date: 20250226
  Receipt Date: 20250227
  Transmission Date: 20250409
  Serious: Yes (Hospitalization)
  Sender: CHIESI
  Company Number: US-CHIESI-2025CHF00749

PATIENT
  Sex: Female
  Weight: 41.69 kg

DRUGS (1)
  1. BIRCH BARK\HERBALS [Suspect]
     Active Substance: BIRCH BARK\HERBALS
     Indication: Epidermolysis bullosa
     Route: 061
     Dates: start: 20241207

REACTIONS (2)
  - Ill-defined disorder [Recovering/Resolving]
  - Wound infection [Recovering/Resolving]
